FAERS Safety Report 6335229-9 (Version None)
Quarter: 2009Q3

REPORT INFORMATION
  Report Type: 
  Country: None (occurrence: None)
  Receive Date: 20090828
  Receipt Date: 20090828
  Transmission Date: 20100115
  Serious: No
  Sender: FDA-Public Use
  Company Number: None

PATIENT
  Sex: Female
  Weight: 99.7913 kg

DRUGS (1)
  1. LISINOPRIL [Suspect]
     Indication: HYPERTENSION
     Dosage: 1 EVERY MORNING
     Dates: start: 20090508, end: 20090518

REACTIONS (3)
  - BLOOD PRESSURE INCREASED [None]
  - COUGH [None]
  - STRESS URINARY INCONTINENCE [None]
